FAERS Safety Report 8786462 (Version 1)
Quarter: 2012Q4

REPORT INFORMATION
  Report Type: 
  Country: US (occurrence: US)
  Receive Date: 20120914
  Receipt Date: 20120914
  Transmission Date: 20130627
  Serious: Yes (Other)
  Sender: FDA-Public Use
  Company Number: US-PFIZER INC-2012224107

PATIENT
  Age: 56 Year
  Sex: Female

DRUGS (1)
  1. LIPITOR [Suspect]
     Dosage: UNK

REACTIONS (6)
  - Pneumonia klebsiella [Unknown]
  - Drug hypersensitivity [Unknown]
  - Rash maculo-papular [Unknown]
  - Pruritus [Unknown]
  - Haemoglobin decreased [Unknown]
  - Blood sodium decreased [Unknown]
